FAERS Safety Report 11836078 (Version 1)
Quarter: 2015Q4

REPORT INFORMATION
  Report Type: Spontaneous
  Country: US (occurrence: None)
  Receive Date: 20151214
  Receipt Date: 20151214
  Transmission Date: 20160305
  Serious: Yes (Hospitalization)
  Sender: FDA-Public Use
  Company Number: None

PATIENT
  Age: 4 Year
  Sex: Female
  Weight: 17.1 kg

DRUGS (9)
  1. METHOTREXATE [Suspect]
     Active Substance: METHOTREXATE
     Dates: end: 20150720
  2. THIOGUANINE (6-TG) [Suspect]
     Active Substance: THIOGUANINE
     Dates: end: 20150315
  3. PREDNISONE. [Suspect]
     Active Substance: PREDNISONE
     Dates: end: 20150316
  4. ONCASPAR [Suspect]
     Active Substance: PEGASPARGASE
     Dates: end: 20150316
  5. CYTARABINE. [Suspect]
     Active Substance: CYTARABINE
     Dates: end: 20140728
  6. MERCAPTOPURINE. [Suspect]
     Active Substance: MERCAPTOPURINE
     Dates: end: 20150720
  7. CYCLOPHOSPHAMIDE. [Suspect]
     Active Substance: CYCLOPHOSPHAMIDE
     Dates: end: 20150302
  8. VINCRISTINE SULFATE. [Suspect]
     Active Substance: VINCRISTINE SULFATE
     Dates: end: 20150706
  9. DOXORUBICIN HYDROCHLORIDE. [Suspect]
     Active Substance: DOXORUBICIN HYDROCHLORIDE
     Dates: end: 20150209

REACTIONS (8)
  - Rhinovirus infection [None]
  - Pneumonia adenoviral [None]
  - Neutropenia [None]
  - Wheezing [None]
  - Dyspnoea [None]
  - Cough [None]
  - Pyrexia [None]
  - Upper respiratory tract infection [None]

NARRATIVE: CASE EVENT DATE: 20150623
